FAERS Safety Report 21217955 (Version 1)
Quarter: 2022Q3

REPORT INFORMATION
  Report Type: Spontaneous
  Country: US (occurrence: None)
  Receive Date: 20220815
  Receipt Date: 20220815
  Transmission Date: 20221026
  Serious: No
  Sender: FDA-Public Use
  Company Number: None

PATIENT
  Age: 48 Year
  Sex: Female

DRUGS (1)
  1. HUMIRA [Suspect]
     Active Substance: ADALIMUMAB
     Dosage: OTHER FREQUENCY : OTHER;?
     Route: 058

REACTIONS (4)
  - Coronary arterial stent insertion [None]
  - Dizziness [None]
  - Gastrointestinal obstruction [None]
  - Confusional state [None]

NARRATIVE: CASE EVENT DATE: 20220802
